FAERS Safety Report 10699336 (Version 2)
Quarter: 2015Q4

REPORT INFORMATION
  Report Type: Spontaneous
  Country: DK (occurrence: DK)
  Receive Date: 20150109
  Receipt Date: 20151210
  Transmission Date: 20160304
  Serious: Yes (Hospitalization)
  Sender: FDA-Public Use
  Company Number: DK-ROCHE-1518701

PATIENT
  Age: 74 Year
  Sex: Female

DRUGS (5)
  1. ZOMETA [Suspect]
     Active Substance: ZOLEDRONIC ACID
     Route: 042
     Dates: start: 20100101, end: 20120501
  2. PROLIA [Concomitant]
     Active Substance: DENOSUMAB
     Route: 065
     Dates: end: 20140915
  3. ZOMETA [Suspect]
     Active Substance: ZOLEDRONIC ACID
     Dosage: ON 01/JUN/2014, SHE RECEIVED THE LAST DOSE OF ZOLEDRONIC ACID PRIOR TO THE EVENT
     Route: 042
     Dates: start: 20120901
  4. BONDRONAT [Suspect]
     Active Substance: IBANDRONIC ACID
     Indication: METASTASES TO BONE
     Dosage: THE MOST RECENT DOSE WAS ADMINISTERED ON 01/AUG/2005
     Route: 042
     Dates: start: 20050101
  5. ZOMETA [Suspect]
     Active Substance: ZOLEDRONIC ACID
     Indication: METASTASES TO BONE
     Route: 042
     Dates: start: 20050801, end: 20070201

REACTIONS (3)
  - Sequestrectomy [Unknown]
  - Osteonecrosis of jaw [Recovered/Resolved]
  - Oral pain [Recovered/Resolved]

NARRATIVE: CASE EVENT DATE: 20140604
